FAERS Safety Report 10787713 (Version 2)
Quarter: 2015Q1

REPORT INFORMATION
  Report Type: Report from Study
  Country: PL (occurrence: PL)
  Receive Date: 20150212
  Receipt Date: 20150218
  Transmission Date: 20150721
  Serious: Yes (Hospitalization)
  Sender: FDA-Public Use
  Company Number: PL-BIOGENIDEC-2015BI013368

PATIENT
  Age: 47 Year
  Sex: Female
  Weight: 58 kg

DRUGS (7)
  1. AXURA [Concomitant]
     Active Substance: MEMANTINE HYDROCHLORIDE
     Indication: ATAXIA
     Route: 048
     Dates: start: 20141203
  2. IBUPROM MAX [Concomitant]
     Indication: INFLUENZA LIKE ILLNESS
     Route: 048
     Dates: start: 20131203
  3. AVONEX [Suspect]
     Active Substance: INTERFERON BETA-1A
     Indication: MULTIPLE SCLEROSIS
     Route: 030
     Dates: start: 20131203
  4. BLINDED THERAPY [Concomitant]
     Active Substance: INVESTIGATIONAL PRODUCT
     Route: 042
     Dates: start: 20131203
  5. KETONAL [Concomitant]
     Active Substance: KETOPROFEN
     Indication: SPINAL PAIN
     Route: 048
     Dates: start: 2010
  6. KETONAL [Concomitant]
     Active Substance: KETOPROFEN
     Indication: ARTHRALGIA
     Route: 048
     Dates: start: 2010
  7. PROPRANOLOL [Concomitant]
     Active Substance: PROPRANOLOL\PROPRANOLOL HYDROCHLORIDE
     Indication: ATAXIA
     Route: 048
     Dates: start: 20141203

REACTIONS (1)
  - Metrorrhagia [Not Recovered/Not Resolved]

NARRATIVE: CASE EVENT DATE: 20150127
